FAERS Safety Report 8458967-0 (Version None)
Quarter: 2012Q2

REPORT INFORMATION
  Report Type: 
  Country: None (occurrence: None)
  Receive Date: 20120622
  Receipt Date: 20120615
  Transmission Date: 20120825
  Serious: Yes (Other)
  Sender: FDA-Public Use
  Company Number: IE-ROCHE-1063722

PATIENT
  Age: 90 Year
  Sex: Female

DRUGS (9)
  1. PREDNISOLONE [Concomitant]
     Dosage: RECEIVED FOR 5 DAYS
     Route: 048
     Dates: start: 20120421
  2. CHLORPHENIRAMINE MALEATE [Concomitant]
     Indication: PREMEDICATION
     Route: 048
  3. ACETAMINOPHEN [Concomitant]
     Indication: PREMEDICATION
     Route: 048
  4. OMEPRAZOLE [Concomitant]
     Route: 048
  5. ALLOPURINOL [Concomitant]
     Route: 048
     Dates: start: 20120421
  6. SEPTRA [Concomitant]
     Route: 048
     Dates: start: 20120421
  7. HYDROCORTISONE [Concomitant]
     Indication: PREMEDICATION
     Route: 042
  8. MABTHERA [Suspect]
     Indication: DIFFUSE LARGE B-CELL LYMPHOMA
     Dates: start: 20120425
  9. VINCRISTINE [Concomitant]

REACTIONS (6)
  - WHEEZING [None]
  - CHEST DISCOMFORT [None]
  - CHILLS [None]
  - INFUSION RELATED REACTION [None]
  - AGITATION [None]
  - PRODUCT QUALITY ISSUE [None]
